FAERS Safety Report 10308065 (Version 1)
Quarter: 2014Q3

REPORT INFORMATION
  Report Type: Spontaneous
  Country: FR (occurrence: FR)
  Receive Date: 20140716
  Receipt Date: 20140716
  Transmission Date: 20150326
  Serious: Yes (Other)
  Sender: FDA-Public Use
  Company Number: FR-SA-2014SA090671

PATIENT
  Age: 51 Year
  Sex: Male

DRUGS (4)
  1. MYAMBUTOL [Suspect]
     Active Substance: ETHAMBUTOL HYDROCHLORIDE
     Indication: TUBERCULOSIS
     Route: 048
     Dates: start: 20140407, end: 20140421
  2. GENTAMICIN [Concomitant]
     Active Substance: GENTAMICIN
  3. AMOXICILLIN. [Concomitant]
     Active Substance: AMOXICILLIN
  4. RIFATER [Suspect]
     Active Substance: ISONIAZID\PYRAZINAMIDE\RIFAMPIN
     Indication: TUBERCULOSIS
     Route: 048
     Dates: start: 20140407, end: 20140421

REACTIONS (10)
  - Disorientation [Recovered/Resolved]
  - Cell death [Recovering/Resolving]
  - Cholestasis [Recovering/Resolving]
  - Hepatic encephalopathy [Recovered/Resolved]
  - Disturbance in attention [Recovered/Resolved]
  - Protein total decreased [Recovering/Resolving]
  - Jaundice [Recovering/Resolving]
  - Asterixis [Recovered/Resolved]
  - General physical health deterioration [Recovered/Resolved]
  - Hepatitis [Recovering/Resolving]

NARRATIVE: CASE EVENT DATE: 201404
